FAERS Safety Report 9850880 (Version 3)
Quarter: 2014Q1

REPORT INFORMATION
  Report Type: Spontaneous
  Country: US (occurrence: US)
  Receive Date: 20140128
  Receipt Date: 20140311
  Transmission Date: 20141002
  Serious: Yes (Other)
  Sender: FDA-Public Use
  Company Number: US-PFIZER INC-2014024599

PATIENT
  Age: 50 Year
  Sex: Male
  Weight: 99.32 kg

DRUGS (2)
  1. DILANTIN [Suspect]
     Indication: CONVULSION
     Dosage: 300 MG, 2X/DAY (TAKING OF 3 CAPSULES OF 100MG IN THE MORNING AND 3 CAPSULES OF 100MG IN THE NIGHT)
     Route: 048
     Dates: start: 200712
  2. VIMPAT [Concomitant]
     Indication: CONVULSION
     Dosage: UNK

REACTIONS (4)
  - Epilepsy [Unknown]
  - Neoplasm [Unknown]
  - Neoplasm recurrence [Unknown]
  - Drug ineffective [Unknown]
